FAERS Safety Report 7519211-1 (Version None)
Quarter: 2011Q2

REPORT INFORMATION
  Report Type: 
  Country: None (occurrence: None)
  Receive Date: 20110602
  Receipt Date: 20110405
  Transmission Date: 20111010
  Serious: No
  Sender: FDA-Public Use
  Company Number: US-BRISTOL-MYERS SQUIBB COMPANY-15579253

PATIENT
  Age: 67 Year
  Sex: Female
  Weight: 65 kg

DRUGS (4)
  1. OMEPRAZOLE [Concomitant]
  2. KOMBIGLYZE XR [Suspect]
     Indication: DIABETES MELLITUS
     Dosage: 1DF=5MG/500MG. DURATION 2 DAYS
     Route: 048
     Dates: start: 20110210, end: 20110210
  3. DIOVAN [Concomitant]
  4. ATENOLOL [Concomitant]

REACTIONS (2)
  - DIZZINESS [None]
  - MALAISE [None]
